FAERS Safety Report 5537985-6 (Version None)
Quarter: 2007Q4

REPORT INFORMATION
  Report Type: 
  Country: None (occurrence: None)
  Receive Date: 20071207
  Receipt Date: 20071128
  Transmission Date: 20080405
  Serious: Yes (Other)
  Sender: FDA-Public Use
  Company Number: FR-PFIZER INC-2007100464

PATIENT
  Age: 85 Year
  Sex: Male

DRUGS (1)
  1. ARTHROTEC [Suspect]
     Dates: start: 20070101, end: 20070101

REACTIONS (7)
  - CONSTIPATION [None]
  - DRY SKIN [None]
  - FATIGUE [None]
  - HYPERSENSITIVITY [None]
  - INSOMNIA [None]
  - PRURITUS [None]
  - SKIN INFLAMMATION [None]
